FAERS Safety Report 4555224-X (Version None)
Quarter: 2004Q4

REPORT INFORMATION
  Report Type: 
  Country: None (occurrence: None)
  Receive Date: 20041217
  Receipt Date: 20040830
  Transmission Date: 20050328
  Serious: No
  Sender: FDA-Public Use
  Company Number: 2004-BP-07470BP

PATIENT
  Age: 65 Year
  Sex: Female

DRUGS (13)
  1. SPIRIVA [Suspect]
     Indication: CHRONIC OBSTRUCTIVE AIRWAYS DISEASE
     Dosage: 18 MCG (18 MCG), IH
     Route: 055
  2. SPIRIVA [Suspect]
  3. ALBUTEROL [Concomitant]
  4. BUDESONIDE (BUDESONIDE) [Concomitant]
  5. VERAPAMIL [Concomitant]
  6. LISINOPRIL [Concomitant]
  7. METFORMIN HCL [Concomitant]
  8. GLIPISIDE [Concomitant]
  9. SYNTHROID [Concomitant]
  10. EVOXAX [Concomitant]
  11. CLONAPIN (CLONAZEPAM) [Concomitant]
  12. ULTRACET (ULTRACET) [Concomitant]
  13. PROTONIX [Concomitant]

REACTIONS (1)
  - DYSPNOEA EXACERBATED [None]
